FAERS Safety Report 25597620 (Version 2)
Quarter: 2025Q3

REPORT INFORMATION
  Report Type: Report from Study
  Country: US (occurrence: US)
  Receive Date: 20250723
  Receipt Date: 20250818
  Transmission Date: 20251021
  Serious: Yes (Hospitalization, Other)
  Sender: ALEXION PHARMACEUTICALS
  Company Number: US-AstraZeneca-CH-00914995A

PATIENT
  Age: 32 Year

DRUGS (1)
  1. ULTOMIRIS [Suspect]
     Active Substance: RAVULIZUMAB-CWVZ
     Indication: Neuromyelitis optica spectrum disorder
     Route: 065

REACTIONS (6)
  - Sepsis [Recovering/Resolving]
  - Viral infection [Unknown]
  - Fatigue [Not Recovered/Not Resolved]
  - Bacterial infection [Unknown]
  - Thrombosis [Unknown]
  - Vasculitis [Unknown]

NARRATIVE: CASE EVENT DATE: 20250718
